FAERS Safety Report 6824894-5 (Version None)
Quarter: 2010Q3

REPORT INFORMATION
  Report Type: 
  Country: None (occurrence: None)
  Receive Date: 20100708
  Receipt Date: 20061222
  Transmission Date: 20110219
  Serious: No
  Sender: FDA-Public Use
  Company Number: US-PFIZER INC-2007001383

PATIENT
  Sex: Female
  Weight: 52.16 kg

DRUGS (3)
  1. CHANTIX [Suspect]
     Indication: SMOKING CESSATION THERAPY
     Route: 048
     Dates: start: 20061201, end: 20061201
  2. INTERFERON BETA-1A [Concomitant]
     Indication: MULTIPLE SCLEROSIS
  3. KLONOPIN [Concomitant]
     Indication: SLEEP DISORDER

REACTIONS (2)
  - MALAISE [None]
  - NAUSEA [None]
